FAERS Safety Report 11418654 (Version 1)
Quarter: 2015Q3

REPORT INFORMATION
  Report Type: Spontaneous
  Country: US (occurrence: US)
  Receive Date: 20150826
  Receipt Date: 20150826
  Transmission Date: 20151125
  Serious: No
  Sender: FDA-Public Use
  Company Number: US-BRISTOL-MYERS SQUIBB COMPANY-BMS-2015-056394

PATIENT
  Sex: Male

DRUGS (1)
  1. ABILIFY [Suspect]
     Active Substance: ARIPIPRAZOLE
     Indication: AUTISM
     Dosage: 5 MG, UNK
     Route: 048

REACTIONS (4)
  - Wrong technique in product usage process [Unknown]
  - Drug tolerance [Unknown]
  - Agitation [Unknown]
  - Drug ineffective [Unknown]
